FAERS Safety Report 7829237-6 (Version None)
Quarter: 2011Q4

REPORT INFORMATION
  Report Type: 
  Country: None (occurrence: None)
  Receive Date: 20111020
  Receipt Date: 20111012
  Transmission Date: 20120403
  Serious: Yes (Hospitalization)
  Sender: FDA-Public Use
  Company Number: JP-PFIZER INC-2011243092

PATIENT
  Age: 73 Year
  Sex: Female

DRUGS (17)
  1. CEREKINON [Concomitant]
     Indication: GASTROINTESTINAL DISORDER
     Dosage: 300MG/DAY
     Route: 048
  2. CALCITRIOL [Concomitant]
     Indication: PROPHYLAXIS
     Dosage: 0.5 MG, 1X/DAY
     Route: 048
     Dates: end: 20110923
  3. PREGABALIN [Suspect]
     Indication: COMPLEX REGIONAL PAIN SYNDROME
     Dosage: 25 MG, 2X/DAY
     Dates: start: 20110904, end: 20111005
  4. CILOSTAZOL [Concomitant]
     Dosage: 200MG/DAY
     Route: 048
  5. BACTRIM [Concomitant]
     Indication: PROPHYLAXIS
     Dosage: 0.5 G, 1X/DAY
     Route: 048
     Dates: end: 20110906
  6. CARVEDILOL [Concomitant]
     Dosage: 5 MG, 1X/DAY
     Route: 048
  7. LOXONIN [Concomitant]
     Indication: PAIN
     Dosage: 120MG/DAY
     Route: 048
     Dates: end: 20110907
  8. LENDORMIN [Concomitant]
     Indication: SLEEP DISORDER
     Dosage: 0.25 MG, 1X/DAY
     Route: 048
  9. LANSOPRAZOLE [Concomitant]
     Indication: GASTROOESOPHAGEAL REFLUX DISEASE
     Dosage: 15 MG, 1X/DAY
     Route: 048
  10. VALTREX [Concomitant]
     Indication: PROPHYLAXIS
     Dosage: 250 MG, 1X/DAY
     Route: 048
  11. GRIMAC [Concomitant]
     Indication: GASTRIC MUCOSAL LESION
     Dosage: 1.5MG/DAY
     Route: 048
  12. FERROUS CITRATE [Concomitant]
     Indication: PROPHYLAXIS
     Dosage: 50 MG, 1X/DAY
     Route: 048
     Dates: end: 20110923
  13. METHYCOBAL [Concomitant]
     Indication: PAIN
     Dosage: UNK
     Route: 048
     Dates: start: 20110904, end: 20110922
  14. JUVELA NICOTINATE [Concomitant]
     Dosage: 600MG/DAY
     Route: 048
  15. PREDNISOLONE [Concomitant]
     Dosage: 20 MG, 1X/DAY
     Route: 048
  16. TRAMADOL HYDROCHLORIDE AND ACETAMINOPHEN [Concomitant]
     Indication: PAIN
     Dosage: 5 DF/DAY
     Dates: start: 20110908
  17. DOMPERIDONE [Concomitant]
     Indication: PROPHYLAXIS
     Dosage: 30MG/DAY
     Route: 048
     Dates: start: 20110908, end: 20110922

REACTIONS (3)
  - SOMNOLENCE [None]
  - HYPONATRAEMIA [None]
  - DECREASED APPETITE [None]
